FAERS Safety Report 10203235 (Version 3)
Quarter: 2014Q2

REPORT INFORMATION
  Report Type: Report from Study
  Country: CA (occurrence: CA)
  Receive Date: 20140529
  Receipt Date: 20140609
  Transmission Date: 20141212
  Serious: Yes (Other)
  Sender: FDA-Public Use
  Company Number: CA-ROCHE-1362762

PATIENT
  Sex: Female

DRUGS (10)
  1. RITUXAN [Suspect]
     Indication: RHEUMATOID ARTHRITIS
     Dosage: FREQUENCY:  DAY 1, DAY 15
     Route: 042
     Dates: start: 20130809, end: 20130823
  2. ACETAMINOPHEN [Concomitant]
     Indication: PREMEDICATION
     Route: 048
     Dates: start: 20130809, end: 20130823
  3. DIPHENHYDRAMINE HCL [Concomitant]
     Indication: PREMEDICATION
     Route: 065
     Dates: start: 20130809, end: 20130823
  4. VENLAFAXINE [Concomitant]
  5. ATASOL (PARACETAMOL) [Concomitant]
  6. CORTISONE [Concomitant]
     Route: 065
  7. ASA [Concomitant]
     Route: 065
  8. MAVIK [Concomitant]
     Route: 065
  9. BISOPROLOL [Concomitant]
     Route: 065
  10. METHYLPREDNISOLONE [Concomitant]
     Route: 042
     Dates: start: 20130809, end: 20130823

REACTIONS (6)
  - Neoplasm malignant [Unknown]
  - Cardiomegaly [Unknown]
  - Hypertension [Unknown]
  - Cardiac amyloidosis [Unknown]
  - Blood disorder [Unknown]
  - Arthralgia [Unknown]
